FAERS Safety Report 9357594 (Version 2)
Quarter: 2013Q3

REPORT INFORMATION
  Report Type: Spontaneous
  Country: US (occurrence: US)
  Receive Date: 20130620
  Receipt Date: 20130722
  Transmission Date: 20140515
  Serious: Yes (Hospitalization)
  Sender: FDA-Public Use
  Company Number: US-BAYER-2013-073487

PATIENT
  Age: 19 Year
  Sex: Female
  Weight: 69.2 kg

DRUGS (4)
  1. YAZ [Suspect]
  2. DICLOFENAC [Concomitant]
  3. SUDAFED [Concomitant]
  4. IBUPROFEN [Concomitant]

REACTIONS (1)
  - Pulmonary embolism [None]
